FAERS Safety Report 6197891-3 (Version None)
Quarter: 2009Q2

REPORT INFORMATION
  Report Type: 
  Country: None (occurrence: None)
  Receive Date: 20090521
  Receipt Date: 20090514
  Transmission Date: 20091009
  Serious: Yes (Hospitalization, Disabling)
  Sender: FDA-Public Use
  Company Number: A0781371A

PATIENT
  Sex: Male
  Weight: 72 kg

DRUGS (12)
  1. ELTROMBOPAG [Suspect]
     Indication: THROMBOCYTOPENIA
     Dosage: 25MG PER DAY
     Route: 048
     Dates: start: 20090227, end: 20090313
  2. ELTROMBOPAG [Suspect]
     Dosage: 25MG PER DAY
     Route: 048
     Dates: start: 20090313, end: 20090428
  3. PEGASYS [Suspect]
     Dosage: 180MCG WEEKLY
     Route: 058
     Dates: start: 20090313, end: 20090428
  4. COPEGUS [Suspect]
     Route: 048
     Dates: start: 20090313, end: 20090428
  5. ACETAMINOPHEN [Concomitant]
     Dosage: 1300MG AS REQUIRED
     Route: 048
     Dates: start: 20090417, end: 20090424
  6. NOVOLIN [Concomitant]
     Dosage: 4UNIT AS REQUIRED
     Route: 058
     Dates: start: 20090502, end: 20090508
  7. RANITIDINE [Concomitant]
     Indication: PROPHYLAXIS
     Dosage: 150MG TWICE PER DAY
     Route: 048
     Dates: start: 20090430, end: 20090512
  8. MUCOGEL [Concomitant]
     Indication: PROPHYLAXIS
     Dosage: 3G THREE TIMES PER DAY
     Route: 048
     Dates: start: 20090430, end: 20090512
  9. TIROPRAMIDE HYDROCHLORIDE [Concomitant]
     Indication: ABDOMINAL PAIN
     Dosage: 1TAB TWICE PER DAY
     Route: 048
     Dates: start: 20090507, end: 20090508
  10. OXOLAMINE CITRATE [Concomitant]
     Indication: COUGH
     Dosage: 10ML THREE TIMES PER DAY
     Route: 048
     Dates: start: 20090502, end: 20090509
  11. KETOROLAC [Concomitant]
     Indication: ABDOMINAL PAIN
     Dosage: 1AMP SINGLE DOSE
     Route: 042
     Dates: start: 20090506, end: 20090506
  12. MEPERIDINE HCL [Concomitant]
     Indication: ABDOMINAL PAIN
     Dosage: .5AMP SINGLE DOSE
     Route: 042
     Dates: start: 20090506, end: 20090506

REACTIONS (1)
  - DEAFNESS NEUROSENSORY [None]
